FAERS Safety Report 11890815 (Version 3)
Quarter: 2016Q1

REPORT INFORMATION
  Report Type: Report from Study
  Country: NL (occurrence: NL)
  Receive Date: 20160106
  Receipt Date: 20160129
  Transmission Date: 20160526
  Serious: No
  Sender: FDA-Public Use
  Company Number: NL-AMGEN-NLDNI2015138148

PATIENT
  Age: 55 Year
  Sex: Female

DRUGS (10)
  1. AMG 145 [Suspect]
     Active Substance: EVOLOCUMAB
     Indication: HYPERCHOLESTEROLAEMIA
     Dosage: 140 MG, Q2WK
     Route: 058
     Dates: start: 20151202
  2. TOLBUTAMIDE. [Concomitant]
     Active Substance: TOLBUTAMIDE
     Dosage: 500 MG, TID
     Route: 048
     Dates: start: 20140328
  3. METOPROLOL SUCCINATE. [Concomitant]
     Active Substance: METOPROLOL SUCCINATE
     Dosage: 100 MG, QD
     Route: 048
     Dates: start: 20140328
  4. OMEPRAZOL                          /00661201/ [Concomitant]
     Active Substance: OMEPRAZOLE
     Dosage: 40 MG, BID
     Route: 048
     Dates: start: 20150923
  5. NITROGLYCERINE [Concomitant]
     Active Substance: NITROGLYCERIN
     Dosage: 0.4 MG, UNK
     Route: 060
     Dates: start: 20140328
  6. HYDROCHLORTHIAZID [Concomitant]
     Active Substance: HYDROCHLOROTHIAZIDE
     Dosage: 12.5 MG, QD
     Route: 048
     Dates: start: 20140328
  7. GEMFIBROZIL. [Concomitant]
     Active Substance: GEMFIBROZIL
     Dosage: 600 MG, BID
     Route: 048
     Dates: start: 20150923
  8. LISINOPRIL. [Concomitant]
     Active Substance: LISINOPRIL
     Dosage: 10 MG, QD
     Route: 048
     Dates: start: 20150708
  9. CALCIUM CARBONATE. [Concomitant]
     Active Substance: CALCIUM CARBONATE
     Dosage: 100 MG, QD
     Route: 048
     Dates: start: 20140328, end: 20151202
  10. ACETYLSALICYLIC ACID [Concomitant]
     Active Substance: ASPIRIN
     Dosage: 80 MG, QD
     Route: 048
     Dates: start: 20151202

REACTIONS (8)
  - Oedema [Recovered/Resolved]
  - Fatigue [Recovered/Resolved]
  - Fluid retention [Recovered/Resolved]
  - Sneezing [Recovered/Resolved]
  - Secretion discharge [Recovered/Resolved]
  - Palatal swelling [Recovered/Resolved]
  - Muscle spasms [Recovered/Resolved]
  - Blood glucose increased [Recovered/Resolved]

NARRATIVE: CASE EVENT DATE: 20151202
